FAERS Safety Report 20718975 (Version 1)
Quarter: 2022Q2

REPORT INFORMATION
  Report Type: Spontaneous
  Country: US (occurrence: US)
  Receive Date: 20220418
  Receipt Date: 20220418
  Transmission Date: 20220720
  Serious: Yes (Other)
  Sender: FDA-Public Use
  Company Number: US-STRIDES ARCOLAB LIMITED-2022SP003955

PATIENT
  Age: 57 Year
  Sex: Male

DRUGS (8)
  1. PREDNISOLONE [Suspect]
     Active Substance: PREDNISOLONE
     Indication: Eosinophilic pneumonia chronic
     Dosage: 40 MILLIGRAM PER DAY
     Route: 065
     Dates: start: 201411
  2. PREDNISOLONE [Suspect]
     Active Substance: PREDNISOLONE
     Dosage: UNK (THE PATIENT REMAINED ON MODERATE DOSES (10 - 15 MG) OF DAILY PREDNISONE.)
     Route: 065
  3. PREDNISOLONE [Suspect]
     Active Substance: PREDNISOLONE
     Dosage: UNK (EVENTUALLY, PREDNISONE WAS WEANED OFF IN FEB 2017))
     Route: 065
     Dates: start: 201702, end: 201702
  4. PREDNISOLONE [Suspect]
     Active Substance: PREDNISOLONE
     Dosage: 40 MILLIGRAM PER DAY
     Route: 065
  5. PREDNISOLONE [Suspect]
     Active Substance: PREDNISOLONE
     Dosage: UNK (WAS WEANED OFF PREDNISONE AFTER 4 MONTHS)
     Route: 065
  6. PREDNISOLONE [Suspect]
     Active Substance: PREDNISOLONE
     Dosage: UNK (DOSING WAS TAPERED OVER THE FOLLOWING 3 WEEKS)
     Route: 065
  7. TAMSULOSIN [Concomitant]
     Active Substance: TAMSULOSIN
     Indication: Benign prostatic hyperplasia
     Dosage: UNK
     Route: 065
  8. Fluticasone propionate-salmeterol [Concomitant]
     Indication: Asthma
     Dosage: 1 DOSAGE FORM, BID
     Route: 065

REACTIONS (3)
  - Osteopenia [Unknown]
  - Type 2 diabetes mellitus [Unknown]
  - Weight increased [Unknown]
